FAERS Safety Report 9222913 (Version 1)
Quarter: 2013Q2

REPORT INFORMATION
  Report Type: Spontaneous
  Country: US (occurrence: US)
  Receive Date: 20130410
  Receipt Date: 20130410
  Transmission Date: 20140414
  Serious: Yes (Other)
  Sender: FDA-Public Use
  Company Number: US-JNJFOC-20130403909

PATIENT
  Age: 61 Year
  Sex: Female

DRUGS (1)
  1. NICOTINE POLACRILEX GUM 4 MG ORIGINAL [Suspect]
     Indication: SMOKING CESSATION THERAPY
     Dosage: AT LEAST 10 PIECES A DAY
     Route: 065
     Dates: start: 2000

REACTIONS (4)
  - Nicotine dependence [Not Recovered/Not Resolved]
  - Intentional drug misuse [Unknown]
  - Feeling jittery [Not Recovered/Not Resolved]
  - Nervousness [Not Recovered/Not Resolved]
